FAERS Safety Report 21580540 (Version 3)
Quarter: 2023Q1

REPORT INFORMATION
  Report Type: Spontaneous
  Country: US (occurrence: US)
  Receive Date: 20221110
  Receipt Date: 20230210
  Transmission Date: 20230418
  Serious: Yes (Hospitalization)
  Sender: FDA-Public Use
  Company Number: US-JNJFOC-20221111664

PATIENT
  Age: 76 Year
  Sex: Male
  Weight: 65 kg

DRUGS (8)
  1. DARZALEX FASPRO [Suspect]
     Active Substance: DARATUMUMAB\HYALURONIDASE-FIHJ
     Indication: Plasma cell myeloma
     Dosage: CYCLE 1 DAY 1
     Route: 058
     Dates: start: 20220912, end: 20220912
  2. DARZALEX FASPRO [Suspect]
     Active Substance: DARATUMUMAB\HYALURONIDASE-FIHJ
     Dosage: CYCLE 1 DAY 8
     Route: 058
     Dates: start: 20220919, end: 20220919
  3. DARZALEX FASPRO [Suspect]
     Active Substance: DARATUMUMAB\HYALURONIDASE-FIHJ
     Dosage: CYCLE 2 DAY 1
     Route: 058
     Dates: start: 20221013, end: 20221013
  4. DEXAMETHASONE [Suspect]
     Active Substance: DEXAMETHASONE
     Indication: Plasma cell myeloma
     Dosage: CYCLE 1 DAY 1
     Route: 048
     Dates: start: 20220912, end: 20220912
  5. DEXAMETHASONE [Suspect]
     Active Substance: DEXAMETHASONE
     Dosage: CYCLE 1 DAY 8
     Route: 048
     Dates: start: 20220919, end: 20220919
  6. DEXAMETHASONE [Suspect]
     Active Substance: DEXAMETHASONE
     Dosage: CYCLE 2 DAY 1
     Route: 048
     Dates: start: 20221013, end: 20221013
  7. POMALIDOMIDE [Suspect]
     Active Substance: POMALIDOMIDE
     Indication: Plasma cell myeloma
     Dosage: CYCLE 1
     Route: 048
     Dates: start: 20220912, end: 20220925
  8. POMALIDOMIDE [Suspect]
     Active Substance: POMALIDOMIDE
     Dosage: CYCLE 2
     Route: 048
     Dates: start: 20221013

REACTIONS (1)
  - Plasma cell myeloma [Recovered/Resolved]

NARRATIVE: CASE EVENT DATE: 20221025
